FAERS Safety Report 10466505 (Version 1)
Quarter: 2014Q3

REPORT INFORMATION
  Report Type: Spontaneous
  Country: AU (occurrence: AU)
  Receive Date: 20140922
  Receipt Date: 20140922
  Transmission Date: 20150326
  Serious: Yes (Death)
  Sender: FDA-Public Use
  Company Number: AU-BANPHARM-20143048

PATIENT
  Age: 32 Year
  Sex: Female

DRUGS (4)
  1. IBUPROFEN UNKNOWN PRODUCT [Suspect]
     Active Substance: IBUPROFEN
     Indication: TOOTH ABSCESS
     Dosage: 8 DF, QD,
     Route: 048
  2. DOTHIEPIN HYDROCHLORIDE [Concomitant]
     Active Substance: DOTHIEPIN HYDROCHLORIDE
     Dosage: 200 MG, QD,
  3. VITAMIN B12 [Suspect]
     Active Substance: CYANOCOBALAMIN
  4. ESOMEPRAZOLE [Concomitant]
     Active Substance: ESOMEPRAZOLE
     Dosage: 40 MG, BID,

REACTIONS (21)
  - Intestinal diaphragm disease [Not Recovered/Not Resolved]
  - Hypoalbuminaemia [None]
  - Pulmonary oedema [Not Recovered/Not Resolved]
  - Renal tubular acidosis [None]
  - Intestinal fibrosis [None]
  - Vitamin D deficiency [None]
  - Tooth abscess [None]
  - Gastric ulcer haemorrhage [None]
  - Pulmonary congestion [None]
  - Pancreatitis chronic [Not Recovered/Not Resolved]
  - Oesophageal stenosis [None]
  - Abdominal adhesions [None]
  - Hepatic steatosis [Not Recovered/Not Resolved]
  - Gastritis erosive [None]
  - Pancreatic pseudocyst [None]
  - Protein-losing gastroenteropathy [Fatal]
  - Intestinal stenosis [None]
  - Duodenal ulcer [None]
  - Generalised oedema [None]
  - Iron deficiency anaemia [None]
  - Weight decreased [None]
